FAERS Safety Report 7148750-0 (Version None)
Quarter: 2010Q4

REPORT INFORMATION
  Report Type: 
  Country: None (occurrence: None)
  Receive Date: 20101209
  Receipt Date: 20101203
  Transmission Date: 20110411
  Serious: Yes (Other)
  Sender: FDA-Public Use
  Company Number: US-ROCHE-746541

PATIENT

DRUGS (1)
  1. BONIVA [Suspect]
     Indication: BONE METABOLISM DISORDER
     Route: 065

REACTIONS (2)
  - FALL [None]
  - HIP FRACTURE [None]
